FAERS Safety Report 7906018-6 (Version None)
Quarter: 2011Q4

REPORT INFORMATION
  Report Type: 
  Country: None (occurrence: None)
  Receive Date: 20111110
  Receipt Date: 20111102
  Transmission Date: 20120403
  Serious: Yes (Hospitalization)
  Sender: FDA-Public Use
  Company Number: FR-UCBSA-032177

PATIENT
  Sex: Female
  Weight: 111 kg

DRUGS (8)
  1. KEPPRA [Suspect]
     Indication: EPILEPSY
     Route: 048
     Dates: start: 20100201
  2. LAMICTAL [Concomitant]
     Indication: EPILEPSY
     Dosage: 150 MG
     Route: 048
     Dates: start: 20090601, end: 20100101
  3. DEPAKENE [Concomitant]
     Dosage: 2000 MG
     Route: 048
     Dates: start: 20070101, end: 20100101
  4. URBANYL [Concomitant]
     Indication: EPILEPSY
     Dosage: 30 MG
     Route: 048
     Dates: start: 20070101, end: 20100101
  5. TEGRETOL [Concomitant]
     Indication: EPILEPSY
     Dosage: 200 MG
     Route: 048
     Dates: start: 20080101, end: 20100101
  6. DEPAKENE [Concomitant]
     Indication: EPILEPSY
  7. LAMICTAL [Concomitant]
     Dosage: 200 MG
     Dates: start: 20100101
  8. KEPPRA [Suspect]
     Dates: end: 20100101

REACTIONS (2)
  - CONVULSION [None]
  - PREGNANCY [None]
